FAERS Safety Report 6325922-6 (Version None)
Quarter: 2009Q3

REPORT INFORMATION
  Report Type: 
  Country: None (occurrence: None)
  Receive Date: 20090824
  Receipt Date: 20090817
  Transmission Date: 20100115
  Serious: Yes (Hospitalization)
  Sender: FDA-Public Use
  Company Number: HR-BRISTOL-MYERS SQUIBB COMPANY-14743041

PATIENT
  Age: 60 Year
  Sex: Male

DRUGS (3)
  1. WARFARIN SODIUM [Suspect]
     Dosage: FORM = TABS
  2. CLOPIDOGREL BISULFATE [Suspect]
     Dosage: FORM = TABS
  3. ASPIRIN [Suspect]
     Dosage: FORM = TABS

REACTIONS (2)
  - GASTROINTESTINAL HAEMORRHAGE [None]
  - GASTROINTESTINAL ULCER [None]
